FAERS Safety Report 6058970-4 (Version None)
Quarter: 2009Q1

REPORT INFORMATION
  Report Type: 
  Country: None (occurrence: None)
  Receive Date: 20090130
  Receipt Date: 20090126
  Transmission Date: 20090719
  Serious: Yes (Life-Threatening, Other)
  Sender: FDA-Public Use
  Company Number: A0765097A

PATIENT
  Age: 55 Year
  Sex: Male

DRUGS (5)
  1. ADVAIR DISKUS 100/50 [Suspect]
     Indication: CHRONIC OBSTRUCTIVE PULMONARY DISEASE
     Route: 055
     Dates: start: 20081201
  2. METHADONE HCL [Concomitant]
  3. ATENOLOL [Concomitant]
  4. PERCOCET [Concomitant]
  5. NITROGLYCERIN [Concomitant]
     Route: 060

REACTIONS (2)
  - DYSPNOEA [None]
  - PALPITATIONS [None]
